FAERS Safety Report 18484039 (Version 2)
Quarter: 2020Q4

REPORT INFORMATION
  Report Type: Report from Study
  Country: FR (occurrence: FR)
  Receive Date: 20201109
  Receipt Date: 20201118
  Transmission Date: 20210114
  Serious: Yes (Hospitalization, Other)
  Sender: FDA-Public Use
  Company Number: FR-ROCHE-2698884

PATIENT
  Age: 15 Year
  Sex: Male
  Weight: 32 kg

DRUGS (4)
  1. ATEZOLIZUMAB. [Suspect]
     Active Substance: ATEZOLIZUMAB
     Indication: SOFT TISSUE SARCOMA
     Dosage: DATE OF LAST DOSE (492 MG) PRIOR TO THE ONSET OF SAE: 26/OCT/2020
     Route: 042
     Dates: start: 20200910
  2. COBIMETINIB. [Suspect]
     Active Substance: COBIMETINIB
     Indication: SOFT TISSUE SARCOMA
     Dosage: DATE OF LAST DAILY DOSE (6.5 ML EVERY 1 DAY (S) 21 DAYS ON / 7 DAYS OFF): NOV/2020
     Route: 048
     Dates: start: 20200910
  3. BACTRIM [Concomitant]
     Active Substance: SULFAMETHOXAZOLE\TRIMETHOPRIM
     Indication: PROPHYLAXIS
     Route: 048
  4. UVEDOSE [Concomitant]
     Active Substance: CHOLECALCIFEROL
     Route: 048
     Dates: start: 20201007

REACTIONS (2)
  - Tibia fracture [Not Recovered/Not Resolved]
  - COVID-19 [Recovered/Resolved]

NARRATIVE: CASE EVENT DATE: 20201015
